FAERS Safety Report 10174539 (Version 1)
Quarter: 2014Q2

REPORT INFORMATION
  Report Type: Spontaneous
  Country: US (occurrence: US)
  Receive Date: 20140515
  Receipt Date: 20140515
  Transmission Date: 20141212
  Serious: Yes (Death, Other)
  Sender: FDA-Public Use
  Company Number: US-GILEAD-2014-0102224

PATIENT
  Age: 72 Year
  Sex: Male

DRUGS (10)
  1. LETAIRIS [Suspect]
     Indication: PULMONARY ARTERIAL HYPERTENSION
     Dosage: 5 MG, QD
     Route: 065
     Dates: start: 20131213, end: 20140502
  2. ADCIRCA [Concomitant]
     Dosage: 40 MG, QD
  3. AMIODARONE [Concomitant]
  4. XARELTO [Concomitant]
  5. CARVEDILOL [Concomitant]
  6. FINASTERIDE [Concomitant]
  7. CARTIA XT [Concomitant]
  8. TERAZOSIN [Concomitant]
  9. SOTALOL AF                         /00371501/ [Concomitant]
  10. ADVAIR [Concomitant]

REACTIONS (2)
  - Death [Fatal]
  - Cardiac failure congestive [Unknown]
